FAERS Safety Report 11603391 (Version 3)
Quarter: 2015Q4

REPORT INFORMATION
  Report Type: Spontaneous
  Country: DK (occurrence: DK)
  Receive Date: 20151007
  Receipt Date: 20151217
  Transmission Date: 20160304
  Serious: Yes (Death, Life-Threatening)
  Sender: FDA-Public Use
  Company Number: DK-ROCHE-1639986

PATIENT
  Age: 43 Year
  Sex: Male
  Weight: 120 kg

DRUGS (8)
  1. PANTOPRAZOLE [Concomitant]
     Active Substance: PANTOPRAZOLE SODIUM
     Indication: DYSPEPSIA
     Dosage: 20 MG, QD,
     Route: 048
  2. MAGNESIA [Concomitant]
     Active Substance: MAGNESIUM HYDROXIDE
     Indication: DYSPEPSIA
     Dosage: 1 G, QD
     Route: 048
  3. CEFTRIAXONE. [Suspect]
     Active Substance: CEFTRIAXONE
     Indication: SEPSIS
     Dosage: UNK
     Route: 065
     Dates: start: 20150611
  4. LIORESAL [Suspect]
     Active Substance: BACLOFEN
     Indication: MUSCLE SPASTICITY
     Dosage: 125 UG/ML, QD, 500 MCG/ML
     Route: 037
     Dates: start: 1995
  5. DIAZEPAM. [Concomitant]
     Active Substance: DIAZEPAM
     Route: 065
  6. BACLOFEN. [Suspect]
     Active Substance: BACLOFEN
     Indication: MUSCLE SPASTICITY
     Dosage: UNK
     Route: 048
     Dates: start: 20150611
  7. LAXOBERAL [Concomitant]
     Active Substance: SODIUM PICOSULFATE
     Indication: DYSPEPSIA
     Dosage: UNK
     Route: 048
  8. ACETYLSALICYLIC ACID [Concomitant]
     Active Substance: ASPIRIN
     Indication: DYSPEPSIA
     Dosage: 5 MG, QD,
     Route: 048

REACTIONS (13)
  - Withdrawal syndrome [Fatal]
  - Sepsis [Unknown]
  - Skin irritation [Not Recovered/Not Resolved]
  - Myocardial infarction [Unknown]
  - Medical device site infection [Unknown]
  - Medical device site inflammation [Unknown]
  - Multi-organ failure [Fatal]
  - Skin erosion [Not Recovered/Not Resolved]
  - Anaphylactic shock [Fatal]
  - Malaise [Unknown]
  - Drug hypersensitivity [Fatal]
  - Body temperature increased [Unknown]
  - Medical device site hypersensitivity [Unknown]

NARRATIVE: CASE EVENT DATE: 201501
